FAERS Safety Report 7729846-9 (Version None)
Quarter: 2011Q3

REPORT INFORMATION
  Report Type: 
  Country: None (occurrence: None)
  Receive Date: 20110906
  Receipt Date: 20110830
  Transmission Date: 20111222
  Serious: Yes (Death)
  Sender: FDA-Public Use
  Company Number: GT-ROCHE-799705

PATIENT
  Sex: Male

DRUGS (1)
  1. CAPECITABINE [Suspect]
     Indication: GASTRIC CANCER
     Dosage: DOSE,FREQUECNY:UNKNOWN
     Route: 048
     Dates: start: 20110419, end: 20110613

REACTIONS (1)
  - DEATH [None]
